FAERS Safety Report 13220183 (Version 1)
Quarter: 2017Q1

REPORT INFORMATION
  Report Type: Spontaneous
  Country: IT (occurrence: IT)
  Receive Date: 20170210
  Receipt Date: 20170210
  Transmission Date: 20170428
  Serious: Yes (Disabling, Other)
  Sender: FDA-Public Use
  Company Number: PHHY2017IT019390

PATIENT
  Age: 71 Year
  Sex: Male
  Weight: 95 kg

DRUGS (1)
  1. ZOMETA [Suspect]
     Active Substance: ZOLEDRONIC ACID
     Indication: PROSTATE CANCER METASTATIC
     Dosage: 4 MG, QMO
     Route: 065
     Dates: start: 20141101, end: 20150301

REACTIONS (5)
  - Exposed bone in jaw [Unknown]
  - Swelling face [Unknown]
  - Pathological fracture [Unknown]
  - Osteonecrosis of jaw [Not Recovered/Not Resolved]
  - Pain in jaw [Unknown]

NARRATIVE: CASE EVENT DATE: 20170107
